FAERS Safety Report 8901432 (Version 2)
Quarter: 2014Q1

REPORT INFORMATION
  Report Type: Report from Study
  Country: CA (occurrence: CA)
  Receive Date: 20121109
  Receipt Date: 20140225
  Transmission Date: 20141002
  Serious: Yes (Other)
  Sender: FDA-Public Use
  Company Number: CA-JNJFOC-20121017276

PATIENT
  Age: 22 Year
  Sex: Female
  Weight: 108 kg

DRUGS (3)
  1. REMICADE [Suspect]
     Indication: CROHN^S DISEASE
     Route: 042
     Dates: start: 20110518
  2. REMICADE [Suspect]
     Indication: CROHN^S DISEASE
     Route: 042
     Dates: start: 20110501
  3. IMURAN [Suspect]
     Indication: CROHN^S DISEASE
     Route: 048

REACTIONS (2)
  - Skin papilloma [Recovering/Resolving]
  - Local swelling [Unknown]
